FAERS Safety Report 16105498 (Version 1)
Quarter: 2019Q1

REPORT INFORMATION
  Report Type: Spontaneous
  Country: US (occurrence: US)
  Receive Date: 20190219
  Receipt Date: 20190219
  Transmission Date: 20190418
  Serious: Yes (Disabling)
  Sender: FDA-Public Use
  Company Number: None

PATIENT
  Age: 4 Year
  Sex: Male
  Weight: 21.6 kg

DRUGS (2)
  1. FOOD DYES, COLOR ADDITIVES [Suspect]
     Active Substance: UNSPECIFIED INGREDIENT
  2. IBUPROFEN. [Suspect]
     Active Substance: IBUPROFEN

REACTIONS (7)
  - Psychomotor hyperactivity [None]
  - Emotional disorder [None]
  - Rash [None]
  - Irritable bowel syndrome [None]
  - Tic [None]
  - Aggression [None]
  - Disturbance in attention [None]

NARRATIVE: CASE EVENT DATE: 20150201
